FAERS Safety Report 24678444 (Version 1)
Quarter: 2024Q4

REPORT INFORMATION
  Report Type: Spontaneous
  Country: GB (occurrence: GB)
  Receive Date: 20241129
  Receipt Date: 20241129
  Transmission Date: 20250114
  Serious: Yes (Other)
  Sender: TEVA
  Company Number: GB-MHRA-TPP42185562C1672377YC1732035799907

PATIENT
  Age: 80 Year
  Sex: Female
  Weight: 91 kg

DRUGS (11)
  1. DOXYCYCLINE [Suspect]
     Active Substance: DOXYCYCLINE
     Indication: Ill-defined disorder
     Route: 065
     Dates: start: 20240822, end: 20240826
  2. FLUTICASONE PROPIONATE [Concomitant]
     Active Substance: FLUTICASONE PROPIONATE
     Indication: Ill-defined disorder
     Dosage: SPRAY ONE TO TWO SQUIRTS INTO EACH NOSTRIL ONCE...
     Dates: start: 20240108
  3. MEBEVERINE HYDROCHLORIDE [Concomitant]
     Active Substance: MEBEVERINE HYDROCHLORIDE
     Indication: Abdominal distension
     Dosage: TIME INTERVAL: 0.33333333 DAYS
     Dates: start: 20240429
  4. OMEPRAZOLE [Concomitant]
     Active Substance: OMEPRAZOLE
     Indication: Ill-defined disorder
     Dates: start: 20240108
  5. CO-AMILOFRUSE [Concomitant]
     Active Substance: AMILORIDE\FUROSEMIDE
     Indication: Ill-defined disorder
     Dates: start: 20240108
  6. CLARITHROMYCIN [Concomitant]
     Active Substance: CLARITHROMYCIN
     Indication: Ill-defined disorder
     Dates: start: 20241119
  7. RAMIPRIL [Concomitant]
     Active Substance: RAMIPRIL
     Indication: Ill-defined disorder
     Dates: start: 20240108
  8. ERYTHROMYCIN [Concomitant]
     Active Substance: ERYTHROMYCIN
     Indication: Ill-defined disorder
     Dates: start: 20240823, end: 20240830
  9. ZEROBASE [Concomitant]
     Indication: Ill-defined disorder
     Dosage: USE WHEN REQUIRED AS DIRECTED
     Dates: start: 20240108
  10. ATORVASTATIN [Concomitant]
     Active Substance: ATORVASTATIN
     Indication: Ill-defined disorder
     Dates: start: 20240108
  11. BETAMETHASONE VALERATE [Concomitant]
     Active Substance: BETAMETHASONE VALERATE
     Indication: Ill-defined disorder
     Dosage: APPLY THINLY 1-2 TIMES DAILY
     Dates: start: 20241024

REACTIONS (2)
  - Syncope [Unknown]
  - Vomiting [Recovered/Resolved]
